FAERS Safety Report 9499870 (Version 1)
Quarter: 2013Q1

REPORT INFORMATION
  Report Type: Spontaneous
  Country: US (occurrence: None)
  Receive Date: 20130107
  Receipt Date: 20130107
  Transmission Date: 20140127
  Serious: No
  Sender: FDA-Public Use
  Company Number: PHEH2012US022237

PATIENT
  Sex: Female
  Weight: 77.1 kg

DRUGS (8)
  1. GILENYA [Suspect]
     Route: 048
  2. TRIAMTERENE AND HYDROCHLORIDE (HYDROCHLOROTHIAZIDE, TRIAMTERENE) [Concomitant]
  3. SERTRALINE (SERTRALINE) [Concomitant]
  4. LIPITOR (ATORVASTATIN CALCIUM) [Concomitant]
  5. AMANTADINE (AMANTADINE) [Concomitant]
  6. BACLOFEN (BACLOFEN) [Concomitant]
  7. CLOBETASOL (CLOBETASOL) [Concomitant]
  8. EXCEDRIN (CAFEINE, PARACETAMOL) [Concomitant]

REACTIONS (4)
  - Eye movement disorder [None]
  - Hypoaesthesia [None]
  - Muscle spasticity [None]
  - Movement disorder [None]
